FAERS Safety Report 6018194-3 (Version None)
Quarter: 2008Q4

REPORT INFORMATION
  Report Type: 
  Country: None (occurrence: None)
  Receive Date: 20081223
  Receipt Date: 20081215
  Transmission Date: 20090506
  Serious: Yes (Other)
  Sender: FDA-Public Use
  Company Number: PHHY2008BE32441

PATIENT
  Sex: Female

DRUGS (4)
  1. GLEEVEC [Suspect]
     Indication: CHRONIC MYELOID LEUKAEMIA
     Dosage: 400 MG, UNK
     Route: 048
     Dates: end: 20080801
  2. GLEEVEC [Suspect]
     Dosage: 600 MG, UNK
     Dates: end: 20080801
  3. TASIGNA [Suspect]
     Indication: CHRONIC MYELOID LEUKAEMIA
     Dosage: UNK
     Route: 048
     Dates: start: 20081106
  4. SPRYCEL [Concomitant]
     Dosage: UNK
     Dates: start: 20080901, end: 20081001

REACTIONS (1)
  - THROMBOCYTOPENIA [None]
